FAERS Safety Report 6523639-6 (Version None)
Quarter: 2009Q4

REPORT INFORMATION
  Report Type: 
  Country: None (occurrence: None)
  Receive Date: 20091231
  Receipt Date: 20091229
  Transmission Date: 20100525
  Serious: Yes (Death)
  Sender: FDA-Public Use
  Company Number: PHEH2009US16501

PATIENT
  Sex: Female
  Weight: 52.608 kg

DRUGS (9)
  1. TASIGNA [Suspect]
     Indication: ACUTE LYMPHOCYTIC LEUKAEMIA
     Dosage: 400 MG, BID
     Route: 048
     Dates: start: 20090601
  2. DIALYSIS [Concomitant]
  3. METHOTREXATE [Concomitant]
  4. VINCRISTINE [Concomitant]
  5. ASPARAGINASE [Concomitant]
  6. DEXAMETHASONE [Concomitant]
  7. VANCOMYCIN [Concomitant]
  8. FILGRASTIM [Concomitant]
  9. CEFEPIME [Concomitant]

REACTIONS (5)
  - ACUTE LYMPHOCYTIC LEUKAEMIA [None]
  - INFECTION [None]
  - MALIGNANT NEOPLASM PROGRESSION [None]
  - RASH [None]
  - SEPTIC SHOCK [None]
